FAERS Safety Report 4596303-0 (Version None)
Quarter: 2005Q1

REPORT INFORMATION
  Report Type: 
  Country: None (occurrence: None)
  Receive Date: 20050302
  Receipt Date: 20050119
  Transmission Date: 20050727
  Serious: Yes (Death, Hospitalization)
  Sender: FDA-Public Use
  Company Number: JP-MERCK-0501USA03979

PATIENT
  Age: 56 Year
  Sex: Female

DRUGS (12)
  1. PEPCID RPD [Suspect]
     Indication: GASTRITIS
     Route: 048
     Dates: start: 20040917, end: 20050117
  2. OPEPRIM [Suspect]
     Indication: BLOOD CORTICOTROPHIN INCREASED
     Route: 048
     Dates: start: 20041018, end: 20050117
  3. METYRAPONE [Concomitant]
     Indication: BLOOD CORTICOTROPHIN INCREASED
     Route: 048
     Dates: start: 20040909, end: 20050117
  4. GLIMICRON [Concomitant]
     Indication: DIABETES MELLITUS
     Route: 048
     Dates: start: 20041213, end: 20041226
  5. GLYBURIDE [Concomitant]
     Indication: DIABETES MELLITUS
     Route: 048
     Dates: start: 20041227, end: 20050117
  6. ACTONEL [Concomitant]
     Indication: OSTEOPOROSIS
     Route: 048
     Dates: start: 20041001, end: 20041212
  7. SLOW-K [Concomitant]
     Indication: HYPOKALAEMIA
     Route: 048
     Dates: start: 20041115, end: 20041212
  8. SLOW-K [Concomitant]
     Route: 048
     Dates: start: 20041213, end: 20050117
  9. DECADRON [Concomitant]
     Indication: ADRENAL INSUFFICIENCY
     Route: 048
     Dates: start: 20040916, end: 20041031
  10. DECADRON [Concomitant]
     Route: 048
     Dates: start: 20041101, end: 20050117
  11. ALDACTONE [Concomitant]
     Indication: OEDEMA
     Route: 048
     Dates: start: 20041115, end: 20050117
  12. METROPIN [Concomitant]
     Route: 065
     Dates: start: 20040909

REACTIONS (2)
  - LEUKOPENIA [None]
  - PNEUMONIA [None]
